FAERS Safety Report 19140722 (Version 5)
Quarter: 2021Q3

REPORT INFORMATION
  Report Type: Report from Study
  Country: US (occurrence: US)
  Receive Date: 20210415
  Receipt Date: 20210702
  Transmission Date: 20211014
  Serious: Yes (Hospitalization)
  Sender: FDA-Public Use
  Company Number: US-BRISTOL-MYERS SQUIBB COMPANY-BMS-2021-035968

PATIENT
  Age: 61 Year
  Sex: Male
  Weight: 62.59 kg

DRUGS (4)
  1. HUMIRA [Suspect]
     Active Substance: ADALIMUMAB
     Indication: PSORIASIS
     Dosage: CITRATE FREE, 40 MG 1 IN 2 WEEKS
     Route: 058
     Dates: start: 2018
  2. LEVAQUIN [Concomitant]
     Active Substance: LEVOFLOXACIN
     Indication: SEIZURE
     Dosage: UNK
     Route: 065
  3. APIXABAN [Suspect]
     Active Substance: APIXABAN
     Indication: PRODUCT USED FOR UNKNOWN INDICATION
     Dosage: UNK
     Route: 065
  4. DILANTIN [Interacting]
     Active Substance: PHENYTOIN
     Indication: SEIZURE
     Dosage: UNK
     Route: 065
     Dates: end: 20210205

REACTIONS (8)
  - Pharyngitis streptococcal [Recovered/Resolved]
  - Fall [Recovered/Resolved]
  - Injury [Recovered/Resolved]
  - Labelled drug-drug interaction issue [Unknown]
  - Amnesia [Recovered/Resolved]
  - Chronic obstructive pulmonary disease [Recovered/Resolved]
  - Epistaxis [Unknown]
  - Abdominal discomfort [Unknown]

NARRATIVE: CASE EVENT DATE: 202102
